FAERS Safety Report 7888394-6 (Version None)
Quarter: 2011Q4

REPORT INFORMATION
  Report Type: 
  Country: None (occurrence: None)
  Receive Date: 20111103
  Receipt Date: 20111021
  Transmission Date: 20120403
  Serious: Yes (Hospitalization)
  Sender: FDA-Public Use
  Company Number: PHEH2011US07575

PATIENT
  Sex: Female

DRUGS (3)
  1. PENICILLIN [Suspect]
  2. DIOVAN [Suspect]
     Dosage: 160 MG, UNK
  3. SULFUR [Suspect]

REACTIONS (4)
  - URTICARIA [None]
  - DRUG HYPERSENSITIVITY [None]
  - HYPERTENSION [None]
  - PYREXIA [None]
